FAERS Safety Report 17867008 (Version 1)
Quarter: 2020Q2

REPORT INFORMATION
  Report Type: Spontaneous
  Country: US (occurrence: US)
  Receive Date: 20200605
  Receipt Date: 20200605
  Transmission Date: 20200714
  Serious: No
  Sender: FDA-Public Use
  Company Number: US-GUERBET-US-20200004

PATIENT
  Age: 44 Year
  Sex: Female
  Weight: 105.23 kg

DRUGS (2)
  1. NAPROXEN. [Concomitant]
     Active Substance: NAPROXEN
     Indication: PAIN
     Route: 048
  2. DOTAREM [Suspect]
     Active Substance: GADOTERATE MEGLUMINE
     Indication: MAGNETIC RESONANCE IMAGING
     Dates: start: 20200108, end: 20200108

REACTIONS (5)
  - Chest pain [Recovered/Resolved]
  - Product use in unapproved indication [Recovered/Resolved]
  - Productive cough [Recovered/Resolved]
  - Haemoptysis [Recovered/Resolved]
  - Vomiting [Recovered/Resolved]

NARRATIVE: CASE EVENT DATE: 20200108
